FAERS Safety Report 9843285 (Version 1)
Quarter: 2014Q1

REPORT INFORMATION
  Report Type: Report from Study
  Country: MX (occurrence: MX)
  Receive Date: 20140124
  Receipt Date: 20140124
  Transmission Date: 20141002
  Serious: Yes (Other)
  Sender: FDA-Public Use
  Company Number: PHHY2013MX155308

PATIENT
  Age: 32 Year
  Sex: Female
  Weight: 78 kg

DRUGS (5)
  1. SOM230 [Suspect]
     Indication: PITUITARY-DEPENDENT CUSHING^S SYNDROME
     Dosage: 0.9 MG, BID
     Route: 058
     Dates: start: 20121015
  2. LOSARTAN [Concomitant]
     Indication: HYPERTENSION
     Dosage: 50 MG, DAILY
     Route: 048
     Dates: start: 201106, end: 20130114
  3. LEVOTIROXINA [Concomitant]
     Indication: HYPOTHYROIDISM
     Dosage: 100 UG, DAILY
     Route: 048
     Dates: start: 201104, end: 20130114
  4. GABAPENTIN [Concomitant]
     Indication: POLYNEUROPATHY
     Dosage: 600 MG, DAILY
     Route: 048
     Dates: start: 201006, end: 20130114
  5. METFORMIN [Concomitant]
     Indication: DIABETES MELLITUS
     Dosage: 1500 MG, UNK
     Route: 048
     Dates: start: 201006, end: 20130114

REACTIONS (1)
  - Hyperglycaemia [Recovering/Resolving]
